FAERS Safety Report 17246784 (Version 2)
Quarter: 2020Q3

REPORT INFORMATION
  Report Type: Report from Study
  Country: US (occurrence: US)
  Receive Date: 20200108
  Receipt Date: 20200729
  Transmission Date: 20201102
  Serious: Yes (Death)
  Sender: FDA-Public Use
  Company Number: US-PFIZER INC-2020006350

PATIENT

DRUGS (5)
  1. BEVACIZUMAB. [Suspect]
     Active Substance: BEVACIZUMAB
     Indication: RECTAL CANCER
     Dosage: 5 MG/KG, CYCLIC (OVER 30?90 MINUTES)
  2. FLUOROURACIL. [Suspect]
     Active Substance: FLUOROURACIL
     Indication: RECTAL CANCER
     Dosage: 400 MG/M2, CYCLIC (IV BOLUS INJECTION, IMMEDIATELY FOLLOWING LEUCOVORIN)
     Route: 040
  3. FLUOROURACIL. [Suspect]
     Active Substance: FLUOROURACIL
     Dosage: UNK, CYCLIC (2.4 G/M2, CONTINUOUS INFUSION OVER 46 HOURS IMMEDIATELY FOLLOWING BOLUS 5?FU)
  4. OXALIPLATIN. [Suspect]
     Active Substance: OXALIPLATIN
     Indication: RECTAL CANCER
     Dosage: 85 MG/M2, CYCLIC (IV OVER 2 HOURS CONCURRENT WITH LEUCOVORIN)
     Route: 042
  5. CALCIUM FOLINATE [Suspect]
     Active Substance: LEUCOVORIN CALCIUM
     Indication: RECTAL CANCER
     Dosage: 400 MG/M2, CYCLIC (IV OVER 2 HOURS)
     Route: 042

REACTIONS (1)
  - Lower gastrointestinal haemorrhage [Fatal]
